FAERS Safety Report 7037728-3 (Version None)
Quarter: 2010Q4

REPORT INFORMATION
  Report Type: 
  Country: None (occurrence: None)
  Receive Date: 20101011
  Receipt Date: 20101001
  Transmission Date: 20110411
  Serious: Yes (Death)
  Sender: FDA-Public Use
  Company Number: GXKR2010AU11152

PATIENT
  Sex: Female

DRUGS (4)
  1. VENLAFAXINE HCL [Suspect]
     Dosage: 12600 MG, ONCE/SINGLE
     Route: 048
  2. PROPRANOLOL [Concomitant]
     Route: 065
  3. ALCOHOL [Concomitant]
     Route: 065
  4. AMPHETAMINE SULFATE [Concomitant]
     Route: 065

REACTIONS (9)
  - CONFUSIONAL STATE [None]
  - CONVULSION [None]
  - HYPERHIDROSIS [None]
  - HYPOTENSION [None]
  - MYDRIASIS [None]
  - MYOCARDIAL INFARCTION [None]
  - OVERDOSE [None]
  - PERICARDITIS [None]
  - VENTRICULAR TACHYCARDIA [None]
